FAERS Safety Report 6277922-2 (Version None)
Quarter: 2009Q3

REPORT INFORMATION
  Report Type: 
  Country: None (occurrence: None)
  Receive Date: 20090722
  Receipt Date: 20090715
  Transmission Date: 20100115
  Serious: Yes (Hospitalization)
  Sender: FDA-Public Use
  Company Number: CH-BAYER-200925553GPV

PATIENT
  Age: 82 Year
  Sex: Female

DRUGS (8)
  1. ASPIRIN CARDIO [Suspect]
     Indication: CEREBROVASCULAR ACCIDENT
     Dosage: TOTAL DAILY DOSE: 100 MG  UNIT DOSE: 100 MG
     Route: 048
     Dates: start: 20090318, end: 20090323
  2. LIQUEMINE [Suspect]
     Indication: ATRIAL FIBRILLATION
     Route: 041
     Dates: start: 20090318, end: 20090323
  3. LASIX [Concomitant]
     Indication: CARDIAC FAILURE
     Route: 041
     Dates: start: 20090321, end: 20090323
  4. INSULIN [Concomitant]
     Route: 058
     Dates: start: 20090321, end: 20090323
  5. SORTIS [Concomitant]
     Dosage: TOTAL DAILY DOSE: 20 MG
     Route: 048
  6. NEXIUM [Concomitant]
     Dosage: TOTAL DAILY DOSE: 20 MG
     Route: 048
     Dates: start: 20090318
  7. DILTIAZEM [Concomitant]
     Dosage: TOTAL DAILY DOSE: 60 MG
     Route: 048
     Dates: start: 20090319
  8. TRANDATE [Concomitant]
     Dosage: TOTAL DAILY DOSE: 300 MG
     Route: 048
     Dates: start: 20090318, end: 20090322

REACTIONS (6)
  - CARDIAC FAILURE [None]
  - HAEMORRHAGIC STROKE [None]
  - NAUSEA [None]
  - NYSTAGMUS [None]
  - RESPIRATORY FAILURE [None]
  - VOMITING [None]
